FAERS Safety Report 16755840 (Version 1)
Quarter: 2019Q3

REPORT INFORMATION
  Report Type: Spontaneous
  Country: ZA (occurrence: ZA)
  Receive Date: 20190829
  Receipt Date: 20190829
  Transmission Date: 20191005
  Serious: Yes (Hospitalization)
  Sender: FDA-Public Use
  Company Number: PHHY2019ZA040214

PATIENT
  Sex: Female

DRUGS (3)
  1. TRILEPTAL [Suspect]
     Active Substance: OXCARBAZEPINE
     Dosage: 300 MG, BID
     Route: 065
  2. TRILEPTAL [Suspect]
     Active Substance: OXCARBAZEPINE
     Indication: EPILEPSY
     Dosage: 300 MG, BID
     Route: 065
     Dates: start: 2010
  3. TRILEPTAL [Suspect]
     Active Substance: OXCARBAZEPINE
     Dosage: 300 MG, TID
     Route: 065

REACTIONS (11)
  - Muscular weakness [Unknown]
  - Insomnia [Unknown]
  - Movement disorder [Unknown]
  - Vomiting [Unknown]
  - Paraesthesia oral [Unknown]
  - Stress [Unknown]
  - Dizziness [Unknown]
  - Seizure [Unknown]
  - Feeling abnormal [Unknown]
  - Memory impairment [Unknown]
  - Nausea [Unknown]
